FAERS Safety Report 11497060 (Version 2)
Quarter: 2015Q4

REPORT INFORMATION
  Report Type: Report from Study
  Country: US (occurrence: US)
  Receive Date: 20150911
  Receipt Date: 20151104
  Transmission Date: 20160304
  Serious: Yes (Other)
  Sender: FDA-Public Use
  Company Number: PHEH2015US014043

PATIENT
  Sex: Female

DRUGS (4)
  1. VITAMIN D3 [Concomitant]
     Active Substance: CHOLECALCIFEROL
     Indication: PRODUCT USED FOR UNKNOWN INDICATION
     Dosage: 1 DF, QD
     Route: 048
     Dates: start: 20150615
  2. VITAMIN D [Concomitant]
     Active Substance: CHOLECALCIFEROL
     Indication: PRODUCT USED FOR UNKNOWN INDICATION
     Route: 065
  3. GILENYA [Suspect]
     Active Substance: FINGOLIMOD HYDROCHLORIDE
     Indication: MULTIPLE SCLEROSIS
     Dosage: 1 DF, QD
     Route: 048
     Dates: start: 20150513
  4. CALCIUM [Concomitant]
     Active Substance: CALCIUM
     Indication: PRODUCT USED FOR UNKNOWN INDICATION
     Dosage: 1 DF, BID
     Route: 048
     Dates: start: 20150615

REACTIONS (17)
  - Von Willebrand^s disease [Unknown]
  - Stress [Unknown]
  - Musculoskeletal pain [Unknown]
  - Headache [Unknown]
  - Weight decreased [Not Recovered/Not Resolved]
  - Neck pain [Unknown]
  - Back pain [Unknown]
  - Memory impairment [Unknown]
  - Anxiety [Unknown]
  - Apathy [Unknown]
  - Migraine [Unknown]
  - Central nervous system lesion [Unknown]
  - Pain [Not Recovered/Not Resolved]
  - Decreased vibratory sense [Unknown]
  - Fatigue [Unknown]
  - Fibromyalgia [Unknown]
  - Blood pressure decreased [Unknown]
